FAERS Safety Report 9184455 (Version 1)
Quarter: 2012Q4

REPORT INFORMATION
  Report Type: 
  Country: BR (occurrence: BR)
  Receive Date: 20121101
  Receipt Date: 20121101
  Transmission Date: 20130627
  Serious: Yes (Hospitalization)
  Sender: FDA-Public Use
  Company Number: BR-PFIZER INC-2012270891

PATIENT
  Age: 70 Year
  Sex: Male
  Weight: 52 kg

DRUGS (3)
  1. CHAMPIX [Suspect]
     Indication: TOBACCO USER
     Dosage: UNK
     Route: 048
     Dates: start: 201012
  2. CHAMPIX [Suspect]
     Dosage: Unspecified dosage, 2x/day
     Route: 048
  3. ALENIA [Concomitant]
     Dosage: Unspecified dosage, every 12 hours
     Dates: start: 20101220, end: 201104

REACTIONS (7)
  - Labyrinthitis [Recovered/Resolved]
  - Hypertension [Recovered/Resolved]
  - Depression [Recovered/Resolved]
  - Dizziness [Recovered/Resolved]
  - Nausea [Recovered/Resolved]
  - Frustration [Unknown]
  - Drug ineffective [Unknown]
